FAERS Safety Report 4270807-2 (Version None)
Quarter: 2004Q1

REPORT INFORMATION
  Report Type: 
  Country: None (occurrence: None)
  Receive Date: 20040113
  Receipt Date: 20040107
  Transmission Date: 20041129
  Serious: Yes (Hospitalization)
  Sender: FDA-Public Use
  Company Number: DE-JNJFOC-20040101100

PATIENT
  Age: 73 Year
  Sex: Female

DRUGS (5)
  1. REMICADE [Suspect]
     Indication: RHEUMATOID ARTHRITIS
     Dosage: 200 MG, INTRAVENOUS
     Route: 042
     Dates: start: 20030520, end: 20031128
  2. ARAVA [Concomitant]
  3. PREDNISOLONE [Concomitant]
  4. IBUPROFEN [Concomitant]
  5. ESOMEPRAZOLE (ESOMEPRAZOLE) [Concomitant]

REACTIONS (1)
  - TOE AMPUTATION [None]
